FAERS Safety Report 9973593 (Version 2)
Quarter: 2014Q1

REPORT INFORMATION
  Report Type: Report from Study
  Country: US (occurrence: US)
  Receive Date: 20140306
  Receipt Date: 20140306
  Transmission Date: 20141002
  Serious: Yes (Hospitalization)
  Sender: FDA-Public Use
  Company Number: US-ACTELION-A-NJ2014-93800

PATIENT
  Age: 72 Year
  Sex: Female

DRUGS (2)
  1. VELETRI [Suspect]
     Indication: PULMONARY ARTERIAL HYPERTENSION
     Dosage: 9 NG/KG, PER MIN
     Route: 042
     Dates: start: 201311
  2. REVATIO [Concomitant]

REACTIONS (7)
  - Confusional state [Recovering/Resolving]
  - Dysarthria [Recovering/Resolving]
  - Presyncope [Recovering/Resolving]
  - Pain in extremity [Recovering/Resolving]
  - Device issue [Unknown]
  - Pain [Unknown]
  - Hypoaesthesia [Unknown]
